FAERS Safety Report 7347773-6 (Version None)
Quarter: 2011Q1

REPORT INFORMATION
  Report Type: 
  Country: None (occurrence: None)
  Receive Date: 20110311
  Receipt Date: 20110308
  Transmission Date: 20110831
  Serious: Yes (Other)
  Sender: FDA-Public Use
  Company Number: FR-PFIZER INC-2011050209

PATIENT
  Age: 49 Year
  Sex: Female

DRUGS (7)
  1. MEDIATOR [Suspect]
     Indication: TYPE 2 DIABETES MELLITUS
     Dosage: UNK
     Route: 048
     Dates: start: 20000916, end: 20091101
  2. LASIX [Suspect]
     Dosage: UNK
     Route: 048
     Dates: end: 20101109
  3. ENALAPRIL MALEATE [Suspect]
     Dosage: UNK
     Route: 048
  4. LEVOTHYROX [Suspect]
     Dosage: 75 UG, 1X/DAY
     Route: 048
     Dates: start: 20060101
  5. TAHOR [Suspect]
     Dosage: UNK
     Route: 048
     Dates: start: 20070101
  6. AMLOR [Suspect]
     Dosage: UNK
     Route: 048
     Dates: start: 20070101, end: 20101109
  7. DIFFU K [Suspect]
     Dosage: 1 DF, 2X/DAY
     Route: 048
     Dates: end: 20101109

REACTIONS (3)
  - AORTIC VALVE DISEASE [None]
  - MITRAL VALVE DISEASE [None]
  - PULMONARY ARTERIAL HYPERTENSION [None]
